FAERS Safety Report 20838668 (Version 1)
Quarter: 2022Q2

REPORT INFORMATION
  Report Type: Spontaneous
  Country: US (occurrence: None)
  Receive Date: 20220516
  Receipt Date: 20220516
  Transmission Date: 20220721
  Serious: Yes (Other)
  Sender: FDA-Public Use
  Company Number: None

PATIENT
  Age: 37 Year
  Sex: Male
  Weight: 117 kg

DRUGS (7)
  1. CLONAZEPAM [Suspect]
     Active Substance: CLONAZEPAM
     Indication: Product used for unknown indication
     Dosage: OTHER QUANTITY : 112 TABLET(S);?OTHER FREQUENCY : 2 TABS 2X A DAY;?
     Route: 048
     Dates: start: 20220510, end: 20220516
  2. CLONAZEPAM [Concomitant]
  3. PRAZOSIN [Concomitant]
  4. MIRTAZAPINE [Concomitant]
     Active Substance: MIRTAZAPINE
  5. quitiapine(seroquel) [Concomitant]
  6. GABAPENTIN [Concomitant]
  7. PROPRANOLOL HYDROCHLORIDE [Concomitant]
     Active Substance: PROPRANOLOL HYDROCHLORIDE

REACTIONS (9)
  - Product substitution issue [None]
  - Drug ineffective [None]
  - Withdrawal syndrome [None]
  - Nightmare [None]
  - Physical assault [None]
  - Sleep disorder [None]
  - Therapeutic product effect decreased [None]
  - Therapeutic product effect delayed [None]
  - Product measured potency issue [None]

NARRATIVE: CASE EVENT DATE: 20220516
